FAERS Safety Report 10041720 (Version 3)
Quarter: 2014Q3

REPORT INFORMATION
  Report Type: Spontaneous
  Country: US (occurrence: US)
  Receive Date: 20140327
  Receipt Date: 20140804
  Transmission Date: 20150326
  Serious: Yes (Hospitalization, Other)
  Sender: FDA-Public Use
  Company Number: 2013SP006982

PATIENT
  Age: 2 Month
  Sex: Male
  Weight: 7.71 kg

DRUGS (15)
  1. LEVOTHYROXIN [Concomitant]
     Active Substance: LEVOTHYROXINE
     Route: 064
     Dates: start: 19970201
  2. PREDNISONE. [Concomitant]
     Active Substance: PREDNISONE
     Route: 064
     Dates: start: 20130626, end: 20130815
  3. BIOTIN [Concomitant]
     Active Substance: BIOTIN
     Route: 064
     Dates: start: 20130201
  4. NICOTINIC ACID [Concomitant]
     Active Substance: NIACIN
     Route: 064
     Dates: start: 20130201
  5. VITAMIN B [Concomitant]
     Active Substance: VITAMIN B
     Route: 064
     Dates: start: 20130201
  6. FOLIC ACID. [Concomitant]
     Active Substance: FOLIC ACID
     Route: 064
     Dates: start: 20130301
  7. VITAMIN D [Concomitant]
     Active Substance: CHOLECALCIFEROL
     Route: 064
     Dates: start: 20130201
  8. ENBREL [Suspect]
     Active Substance: ETANERCEPT
     Indication: RHEUMATOID ARTHRITIS
     Route: 064
     Dates: start: 20110129, end: 20130429
  9. ASCORBIC ACID. [Concomitant]
     Active Substance: ASCORBIC ACID
     Route: 064
     Dates: start: 20130201
  10. TOCOPHEROL [Concomitant]
     Active Substance: TOCOPHEROL
     Route: 064
     Dates: start: 20130201
  11. METHOTREXATE [Suspect]
     Active Substance: METHOTREXATE
     Indication: PRODUCT USED FOR UNKNOWN INDICATION
     Route: 064
  12. LEVOTHYROXIN [Concomitant]
     Active Substance: LEVOTHYROXINE
     Route: 064
     Dates: start: 20130401
  13. PREDNISONE. [Concomitant]
     Active Substance: PREDNISONE
     Route: 064
     Dates: start: 20130626, end: 20130815
  14. RETINOL [Concomitant]
     Active Substance: RETINOL
     Route: 064
     Dates: start: 20130201
  15. ENFAMIL NATALINS RX [Concomitant]
     Dates: start: 201406

REACTIONS (7)
  - Cough [Unknown]
  - Premature baby [Unknown]
  - Umbilical cord around neck [Unknown]
  - Pyrexia [Unknown]
  - Prenatal screening test abnormal [Unknown]
  - Foetal exposure during pregnancy [Unknown]
  - Nasopharyngitis [Unknown]

NARRATIVE: CASE EVENT DATE: 20131228
